FAERS Safety Report 12935694 (Version 9)
Quarter: 2018Q2

REPORT INFORMATION
  Report Type: Report from Study
  Country: IT (occurrence: IT)
  Receive Date: 20161114
  Receipt Date: 20180502
  Transmission Date: 20180711
  Serious: Yes (Hospitalization)
  Sender: FDA-Public Use
  Company Number: IT-ROCHE-1852476

PATIENT
  Age: 67 Year
  Sex: Male
  Weight: 75 kg

DRUGS (15)
  1. CARBOPLATIN. [Suspect]
     Active Substance: CARBOPLATIN
     Indication: NON-SMALL CELL LUNG CANCER STAGE IV
     Dosage: AREA UNDER THE CONCENTRATION CURVE (AUC) = 6 MG/ML/MIN?MOST RECENT DOSE (800 MG) PRIOR TO ONSET OF D
     Route: 042
     Dates: start: 20161027
  2. MYCOSTATIN [Concomitant]
     Active Substance: NYSTATIN
     Indication: FUNGAL INFECTION
     Route: 065
     Dates: start: 20161108, end: 20161108
  3. PEMETREXED. [Suspect]
     Active Substance: PEMETREXED
     Indication: NON-SMALL CELL LUNG CANCER STAGE IV
     Dosage: MOST RECENT DOSE (900 MG) PRIOR TO ONSET OF DIARRHEA AND WEIGHT LOSS: 27/OCT/2016
     Route: 042
     Dates: start: 20161027
  4. LANSOPRAZOLO [Concomitant]
     Active Substance: LANSOPRAZOLE
     Indication: PROPHYLAXIS
     Route: 065
     Dates: start: 20160827
  5. DOBETIN (CYANOCOBALAMIN) [Concomitant]
     Active Substance: CYANOCOBALAMIN
     Indication: PREMEDICATION
     Route: 065
     Dates: start: 20161019
  6. RANITIDINE. [Concomitant]
     Active Substance: RANITIDINE
     Indication: PROPHYLAXIS
     Route: 065
     Dates: start: 20161107, end: 20161108
  7. ATEZOLIZUMAB. [Suspect]
     Active Substance: ATEZOLIZUMAB
     Indication: NON-SMALL CELL LUNG CANCER STAGE IV
     Dosage: MOST RECENT DOSE PRIOR TO ONSET OF DIARRHEA AND WEIGHT LOSS: 27/OCT/2016
     Route: 042
     Dates: start: 20161027
  8. FOLINGRAV [Concomitant]
     Indication: PREMEDICATION
     Route: 065
     Dates: start: 20161019
  9. DIOSMECTAL [Concomitant]
     Active Substance: UNSPECIFIED INGREDIENT
     Indication: DIARRHOEA
     Route: 065
     Dates: start: 20161012
  10. LOBIVON [Concomitant]
     Active Substance: NEBIVOLOL HYDROCHLORIDE
     Indication: HYPERTENSION
     Route: 065
     Dates: start: 20160115
  11. FENTALGON [Concomitant]
     Indication: PAIN
     Route: 065
     Dates: start: 20161027
  12. TACHIPIRINA [Concomitant]
     Active Substance: ACETAMINOPHEN
     Indication: PAIN
     Route: 065
     Dates: start: 20161012
  13. TAPAZOLE [Concomitant]
     Active Substance: METHIMAZOLE
     Indication: GOITRE
     Route: 065
     Dates: start: 20160201
  14. LEVETIRACETAM. [Concomitant]
     Active Substance: LEVETIRACETAM
     Indication: CONVULSION PROPHYLAXIS
     Route: 065
     Dates: start: 20160827
  15. DEPALGOS [Concomitant]
     Active Substance: ACETAMINOPHEN\OXYCODONE HYDROCHLORIDE
     Indication: PAIN
     Route: 065
     Dates: start: 20161012, end: 20161016

REACTIONS (2)
  - Diarrhoea [Recovered/Resolved]
  - Weight decreased [Recovered/Resolved]

NARRATIVE: CASE EVENT DATE: 20161029
